FAERS Safety Report 6965893-2 (Version None)
Quarter: 2010Q3

REPORT INFORMATION
  Report Type: 
  Country: None (occurrence: None)
  Receive Date: 20100903
  Receipt Date: 20100825
  Transmission Date: 20110219
  Serious: Yes (Other)
  Sender: FDA-Public Use
  Company Number: US-ABBOTT-10P-163-0666070-00

PATIENT
  Sex: Female
  Weight: 65.83 kg

DRUGS (5)
  1. HUMIRA [Suspect]
     Indication: RHEUMATOID ARTHRITIS
     Dates: start: 20050101
  2. NEXIUM [Concomitant]
     Indication: GASTROOESOPHAGEAL REFLUX DISEASE
  3. CYMBALTA [Concomitant]
     Indication: DEPRESSION
  4. TOPROL-XL [Concomitant]
     Indication: HYPERTENSION
  5. HYDROCODONE [Concomitant]
     Indication: PAIN

REACTIONS (9)
  - CHRONIC OBSTRUCTIVE PULMONARY DISEASE [None]
  - CONJUNCTIVITIS [None]
  - EMPHYSEMA [None]
  - HYPHAEMA [None]
  - IMPAIRED HEALING [None]
  - RIB FRACTURE [None]
  - SCLERAL DISCOLOURATION [None]
  - VISUAL IMPAIRMENT [None]
  - WRIST FRACTURE [None]
